FAERS Safety Report 22222421 (Version 1)
Quarter: 2023Q2

REPORT INFORMATION
  Report Type: Report from Study
  Country: DE (occurrence: DE)
  Receive Date: 20230418
  Receipt Date: 20230418
  Transmission Date: 20230721
  Serious: Yes (Hospitalization)
  Sender: FDA-Public Use
  Company Number: DE-002147023-NVSC2023DE085976

PATIENT
  Sex: Male

DRUGS (2)
  1. ERELZI [Suspect]
     Active Substance: ETANERCEPT-SZZS
     Indication: Product used for unknown indication
     Dosage: 50 MG, QW (EVERY 7 DAYS)
     Route: 065
     Dates: end: 20230122
  2. ERELZI [Suspect]
     Active Substance: ETANERCEPT-SZZS
     Dosage: 50 MG, QW (EVERY 7 DAYS)
     Route: 065
     Dates: start: 20230219

REACTIONS (4)
  - Osteoarthritis [Unknown]
  - Femoral neck fracture [Recovered/Resolved]
  - Fall [Recovered/Resolved]
  - Anaemia postoperative [Recovered/Resolved]

NARRATIVE: CASE EVENT DATE: 20230126
